FAERS Safety Report 16431612 (Version 1)
Quarter: 2019Q2

REPORT INFORMATION
  Report Type: Spontaneous
  Country: US (occurrence: US)
  Receive Date: 20190507
  Receipt Date: 20190507
  Transmission Date: 20190711
  Serious: No
  Sender: FDA-Public Use
  Company Number: None

PATIENT
  Age: 55 Year
  Sex: Male

DRUGS (1)
  1. REPATHA [Suspect]
     Active Substance: EVOLOCUMAB
     Dates: start: 20181130

REACTIONS (4)
  - Blood glucose increased [None]
  - Supraventricular tachycardia [None]
  - Pain [None]
  - Stress [None]

NARRATIVE: CASE EVENT DATE: 20190109
